FAERS Safety Report 22387243 (Version 1)
Quarter: 2023Q2

REPORT INFORMATION
  Report Type: Spontaneous
  Country: FR (occurrence: FR)
  Receive Date: 20230531
  Receipt Date: 20230531
  Transmission Date: 20230722
  Serious: Yes (Other)
  Sender: FDA-Public Use
  Company Number: None

PATIENT
  Age: 11 Year
  Sex: Female
  Weight: 46.7 kg

DRUGS (7)
  1. ETOPOSIDE PHOSPHATE [Suspect]
     Active Substance: ETOPOSIDE PHOSPHATE
     Indication: Ewing^s sarcoma
     Dosage: DAILY DOSE: 140 MILLIGRAM
     Route: 042
     Dates: start: 20200316, end: 20200316
  2. ETOPOSIDE PHOSPHATE [Suspect]
     Active Substance: ETOPOSIDE PHOSPHATE
     Indication: Ewing^s sarcoma
     Dates: start: 20200318, end: 20200318
  3. VINCRISTINE [Concomitant]
     Active Substance: VINCRISTINE
     Indication: Ewing^s sarcoma
     Dates: start: 20200226
  4. DOXORUBICIN [Concomitant]
     Active Substance: DOXORUBICIN
     Indication: Ewing^s sarcoma
     Dosage: FIRST COURSE
     Dates: start: 20200226
  5. CYCLOPHOSPHAMIDE [Concomitant]
     Active Substance: CYCLOPHOSPHAMIDE
     Indication: Ewing^s sarcoma
     Dosage: FIRST COURSE
     Dates: start: 20200226
  6. MESNA [Concomitant]
     Active Substance: MESNA
     Indication: Ewing^s sarcoma
     Dosage: FIRST COURSE
     Dates: start: 20200226
  7. IFOSFAMIDE [Concomitant]
     Active Substance: IFOSFAMIDE
     Indication: Ewing^s sarcoma
     Dosage: FIRST COURSE
     Dates: start: 20200316

REACTIONS (5)
  - Tachycardia [Recovered/Resolved]
  - Vomiting [Recovered/Resolved]
  - Abdominal pain [Unknown]
  - Cough [Unknown]
  - Product use in unapproved indication [Recovered/Resolved]

NARRATIVE: CASE EVENT DATE: 20200316
